FAERS Safety Report 9555814 (Version 1)
Quarter: 2013Q3

REPORT INFORMATION
  Report Type: Spontaneous
  Country: US (occurrence: None)
  Receive Date: 20130827
  Receipt Date: 20130827
  Transmission Date: 20140515
  Serious: Yes (Other)
  Sender: FDA-Public Use
  Company Number: 2013EXPUS00116

PATIENT
  Age: 66 Year
  Sex: Female

DRUGS (1)
  1. EXPAREL (BUPIVACAINE) LIPOSOME INJECTABLE SUSPENSION, MG/ML [Suspect]
     Indication: POSTOPERATIVE ANALGESIA
     Dosage: UNK, 1X , INFILTRATION
     Dates: start: 20130603, end: 20130603

REACTIONS (1)
  - Bradycardia [None]
